FAERS Safety Report 6601402-5 (Version None)
Quarter: 2010Q1

REPORT INFORMATION
  Report Type: 
  Country: None (occurrence: None)
  Receive Date: 20100217
  Receipt Date: 20100212
  Transmission Date: 20100710
  Serious: Yes (Life-Threatening, Hospitalization, Other)
  Sender: FDA-Public Use
  Company Number: 2010SP008444

PATIENT
  Age: 48 Year
  Sex: Male
  Weight: 65 kg

DRUGS (6)
  1. INTRON A [Suspect]
     Indication: MALIGNANT MELANOMA
     Dosage: 9 MIU; QW; SC
     Route: 058
     Dates: start: 20090501, end: 20091204
  2. PARACETAMOL (ACETAMINOPHEN (011710)) [Suspect]
     Indication: DRUG USE FOR UNKNOWN INDICATION
     Dosage: 1000 MG; BID; PO
     Route: 048
     Dates: start: 20090501, end: 20091204
  3. MEZAVANT (COMPANY SHIRE) (MESALAZINE /00747601/) [Suspect]
     Indication: COLITIS
     Dosage: 1200 MG; QD; PO
     Route: 048
     Dates: start: 20091201, end: 20091208
  4. VIANI [Concomitant]
  5. L-THYROXIN HENNING [Concomitant]
  6. UREA CORTISON OINTMENT [Concomitant]

REACTIONS (10)
  - ASTHENIA [None]
  - BLOOD BILIRUBIN INCREASED [None]
  - COLITIS [None]
  - COOMBS POSITIVE HAEMOLYTIC ANAEMIA [None]
  - DYSPNOEA [None]
  - FATIGUE [None]
  - GENERAL PHYSICAL HEALTH DETERIORATION [None]
  - JAUNDICE [None]
  - NEURODERMATITIS [None]
  - TINNITUS [None]
